FAERS Safety Report 9006983 (Version 1)
Quarter: 2013Q1

REPORT INFORMATION
  Report Type: Spontaneous
  Country: IT (occurrence: IT)
  Receive Date: 20130110
  Receipt Date: 20130110
  Transmission Date: 20140127
  Serious: Yes (Death, Hospitalization, Other)
  Sender: FDA-Public Use
  Company Number: IT-TEVA-378591ISR

PATIENT
  Age: 23 Year
  Sex: Male

DRUGS (6)
  1. CLARITHROMYCIN [Suspect]
     Indication: OROPHARYNGEAL PAIN
     Dosage: 2 GRAM DAILY; 4X 500MG TABLETS ON 1ST DAY OF TREATMENT
     Route: 065
     Dates: start: 201106
  2. CLARITHROMYCIN [Suspect]
     Route: 065
     Dates: start: 201106
  3. LITHIUM [Suspect]
     Indication: SCHIZOAFFECTIVE DISORDER
     Route: 065
  4. AMISULPRIDE [Suspect]
     Indication: SCHIZOAFFECTIVE DISORDER
     Route: 065
  5. FLUPHENAZINE [Suspect]
     Indication: SCHIZOAFFECTIVE DISORDER
     Route: 065
  6. ORPHENADRINE [Suspect]
     Indication: SCHIZOAFFECTIVE DISORDER
     Route: 065

REACTIONS (12)
  - Hepatitis fulminant [Fatal]
  - Subarachnoid haemorrhage [Unknown]
  - Unresponsive to stimuli [Unknown]
  - Psychotic disorder [Unknown]
  - Confusional state [Unknown]
  - Overdose [Unknown]
  - Hypertransaminasaemia [Not Recovered/Not Resolved]
  - Diarrhoea [Unknown]
  - Vomiting [Unknown]
  - Epistaxis [Unknown]
  - Restlessness [Unknown]
  - Dyspnoea [Unknown]
